FAERS Safety Report 12375891 (Version 1)
Quarter: 2016Q2

REPORT INFORMATION
  Report Type: Spontaneous
  Country: ZA (occurrence: ZA)
  Receive Date: 20160517
  Receipt Date: 20160517
  Transmission Date: 20160815
  Serious: Yes (Other)
  Sender: FDA-Public Use
  Company Number: ZA-GLAXOSMITHKLINE-ZA2016GSK069219

PATIENT
  Sex: Male

DRUGS (1)
  1. GRANDPA (ACETAMINOPHEN\ASPIRIN\CAFFEINE) [Suspect]
     Active Substance: ACETAMINOPHEN\ASPIRIN\CAFFEINE
     Indication: HEADACHE
     Dosage: UNK

REACTIONS (1)
  - Drug dependence [Unknown]
